FAERS Safety Report 5396897-1 (Version None)
Quarter: 2007Q3

REPORT INFORMATION
  Report Type: 
  Country: None (occurrence: None)
  Receive Date: 20070718
  Receipt Date: 20061227
  Transmission Date: 20080115
  Serious: Yes (Hospitalization, Other)
  Sender: FDA-Public Use
  Company Number: 2006134752

PATIENT
  Age: 71 Year
  Sex: Male
  Weight: 102.1 kg

DRUGS (2)
  1. CELEBREX [Suspect]
     Indication: OSTEOARTHRITIS
     Dosage: 400 MG (200 MG,1 IN 1 D),ORAL
     Route: 048
     Dates: start: 20021231
  2. CELEBREX [Suspect]
     Indication: PAIN
     Dosage: 400 MG (200 MG,1 IN 1 D),ORAL
     Route: 048
     Dates: start: 20021231

REACTIONS (4)
  - ANXIETY [None]
  - CEREBROVASCULAR ACCIDENT [None]
  - DEPRESSION [None]
  - MYOCARDIAL INFARCTION [None]
